FAERS Safety Report 23517460 (Version 1)
Quarter: 2024Q1

REPORT INFORMATION
  Report Type: Spontaneous
  Country: US (occurrence: None)
  Receive Date: 20240212
  Receipt Date: 20240212
  Transmission Date: 20240410
  Serious: Yes (Hospitalization)
  Sender: FDA-Public Use
  Company Number: None

PATIENT
  Sex: Female

DRUGS (5)
  1. GAMMAGARD LIQUID [Suspect]
     Active Substance: HUMAN IMMUNOGLOBULIN G
     Dosage: OTHER STRENGTH : 30/300 GM/M;?FREQUENCY : DAILY;?
     Route: 042
     Dates: start: 202309
  2. GAMMAGARD LIQUID [Suspect]
     Active Substance: HUMAN IMMUNOGLOBULIN G
     Dosage: OTHER STRENGTH : 5/50 GM/ML;?FREQUENCY : DAILY;?
     Route: 042
     Dates: start: 202309
  3. HEPARIN L/L FLUSH-SYR [Concomitant]
  4. SODIUM CHLORIDE [Concomitant]
     Active Substance: SODIUM CHLORIDE
  5. DIPHENHYDRAMINE (ALLERGY) [Concomitant]

REACTIONS (2)
  - Malaise [None]
  - Intentional dose omission [None]
